FAERS Safety Report 8938420 (Version 1)
Quarter: 2012Q4

REPORT INFORMATION
  Report Type: 
  Country: DE (occurrence: DE)
  Receive Date: 20121202
  Receipt Date: 20121202
  Transmission Date: 20130627
  Serious: Yes (Hospitalization)
  Sender: FDA-Public Use
  Company Number: DE-TEVA-371753GER

PATIENT
  Age: 37 Year
  Sex: Male

DRUGS (3)
  1. OLANZAPINE [Suspect]
     Route: 048
     Dates: start: 20120321
  2. OLANZAPINE [Suspect]
     Route: 048
     Dates: start: 20120322, end: 20120402
  3. DIPIPERON [Suspect]
     Route: 048
     Dates: start: 20120321, end: 20120406

REACTIONS (1)
  - Hepatic enzyme increased [Recovering/Resolving]
